FAERS Safety Report 9871000 (Version 3)
Quarter: 2014Q1

REPORT INFORMATION
  Report Type: Spontaneous
  Country: US (occurrence: None)
  Receive Date: 20140203
  Receipt Date: 20140224
  Transmission Date: 20141002
  Serious: Yes (Other)
  Sender: FDA-Public Use
  Company Number: 2014P1000619

PATIENT
  Age: 17 Year
  Sex: Female

DRUGS (1)
  1. RIFAMPIN [Suspect]
     Indication: TUBERCULOSIS
     Route: 048
     Dates: start: 20131021, end: 20140106

REACTIONS (7)
  - Migraine [None]
  - Vomiting [None]
  - Incoherent [None]
  - Loss of consciousness [None]
  - Brain oedema [None]
  - Eye swelling [None]
  - Leukoencephalomyelitis [None]
